FAERS Safety Report 5589462-4 (Version None)
Quarter: 2008Q1

REPORT INFORMATION
  Report Type: 
  Country: None (occurrence: None)
  Receive Date: 20080106
  Receipt Date: 20071224
  Transmission Date: 20080703
  Serious: Yes (Other)
  Sender: FDA-Public Use
  Company Number: ACO_00417_2007

PATIENT
  Age: 76 Year
  Sex: Female

DRUGS (6)
  1. TERNELIN [Suspect]
     Indication: DRUG USE FOR UNKNOWN INDICATION
     Dosage: (DF)
     Dates: start: 20071030
  2. VOGLIBOSE                       (VOGLIBOSE) [Suspect]
     Indication: DRUG USE FOR UNKNOWN INDICATION
     Dosage: (0.3 MG BID ORAL)
     Route: 048
     Dates: start: 20071207, end: 20071212
  3. DIOVAN                                          (DIOVAN - VALSARTAN) ( [Suspect]
     Indication: HYPERTENSION
     Dosage: (DF)
     Dates: start: 20071201, end: 20071217
  4. YM [Concomitant]
  5. CHOREITOU [Concomitant]
  6. FORSENID                        /00571901/ [Concomitant]

REACTIONS (6)
  - ALANINE AMINOTRANSFERASE INCREASED [None]
  - ASPARTATE AMINOTRANSFERASE INCREASED [None]
  - DECREASED APPETITE [None]
  - DIABETES MELLITUS [None]
  - HEPATIC FUNCTION ABNORMAL [None]
  - HYPERTENSION [None]
